FAERS Safety Report 18232147 (Version 1)
Quarter: 2020Q3

REPORT INFORMATION
  Report Type: Spontaneous
  Country: US (occurrence: US)
  Receive Date: 20200904
  Receipt Date: 20200904
  Transmission Date: 20201103
  Serious: Yes (Other)
  Sender: FDA-Public Use
  Company Number: US-BAYER-2020-187344

PATIENT
  Sex: Female

DRUGS (1)
  1. MIRENA [Suspect]
     Active Substance: LEVONORGESTREL
     Indication: OVARIAN CANCER
     Dosage: 20 ?G PER DAY CONTINUOUSLY
     Route: 015
     Dates: start: 2020

REACTIONS (4)
  - Vaginal haemorrhage [None]
  - Device use issue [None]
  - Off label use of device [None]
  - Genital haemorrhage [None]

NARRATIVE: CASE EVENT DATE: 2020
